FAERS Safety Report 10947313 (Version 1)
Quarter: 2015Q1

REPORT INFORMATION
  Report Type: Spontaneous
  Country: US (occurrence: None)
  Receive Date: 20150218
  Receipt Date: 20150218
  Transmission Date: 20150721
  Serious: No
  Sender: FDA-Public Use
  Company Number: 2015FE00083

PATIENT
  Age: 67 Year
  Sex: Female
  Weight: 68.9 kg

DRUGS (5)
  1. PREPOPIK [Suspect]
     Active Substance: ANHYDROUS CITRIC ACID\MAGNESIUM OXIDE\SODIUM PICOSULFATE
     Indication: BOWEL PREPARATION
     Dosage: 1ST DOSE AT 4PM; 2ND DOSE AT 9PM
     Dates: start: 20150113, end: 20150113
  2. SOTALOL (SOTALOL) [Concomitant]
     Active Substance: SOTALOL
  3. OXYCODONE/APAP (OXYCODONE HYDROCHLORIDE, PARACETAMOL) [Concomitant]
  4. AMOXICILLIN AND CLAVULANATE POTASSIUM (AMOXICILLIN TRIHYDRATE, CLAVULANATE POTASSIUM) [Concomitant]
  5. ELIQUIS [Concomitant]
     Active Substance: APIXABAN

REACTIONS (1)
  - Bowel movement irregularity [None]

NARRATIVE: CASE EVENT DATE: 20150113
